FAERS Safety Report 20648575 (Version 1)
Quarter: 2022Q1

REPORT INFORMATION
  Report Type: Spontaneous
  Country: DE (occurrence: DE)
  Receive Date: 20220329
  Receipt Date: 20220329
  Transmission Date: 20220423
  Serious: Yes (Hospitalization, Other)
  Sender: FDA-Public Use
  Company Number: DE-ROCHE-2955059

PATIENT
  Age: 70 Month
  Sex: Male

DRUGS (21)
  1. MYCOPHENOLATE MOFETIL [Suspect]
     Active Substance: MYCOPHENOLATE MOFETIL
     Indication: Prophylaxis against transplant rejection
     Dosage: UNK
     Route: 065
     Dates: start: 2017, end: 201801
  2. PREDNISOLONE [Suspect]
     Active Substance: PREDNISOLONE
     Indication: Prophylaxis against transplant rejection
     Dosage: UNK
     Route: 065
     Dates: start: 2017
  3. PREDNISOLONE [Suspect]
     Active Substance: PREDNISOLONE
     Dosage: UNK
     Dates: start: 201908
  4. TACROLIMUS [Suspect]
     Active Substance: TACROLIMUS
     Indication: Prophylaxis against transplant rejection
     Dosage: UNK
     Route: 065
  5. TACROLIMUS [Suspect]
     Active Substance: TACROLIMUS
     Dosage: UNK
     Dates: start: 201710
  6. TACROLIMUS [Suspect]
     Active Substance: TACROLIMUS
     Dosage: UNK, (REDUCED DOSE)
     Route: 065
     Dates: start: 201801, end: 201812
  7. CYCLOSPORINE [Suspect]
     Active Substance: CYCLOSPORINE
     Indication: Prophylaxis against transplant rejection
     Dosage: UNK, /DEC/2018, /FEB/2019
     Route: 065
  8. CYCLOSPORINE [Suspect]
     Active Substance: CYCLOSPORINE
     Dosage: UNK
     Route: 065
     Dates: start: 201812
  9. CYCLOSPORINE [Suspect]
     Active Substance: CYCLOSPORINE
     Dosage: UNK, (REDUCED DOSE)
     Dates: start: 201902
  10. EVEROLIMUS [Suspect]
     Active Substance: EVEROLIMUS
     Indication: Prophylaxis against transplant rejection
     Dosage: UNK, /JAN/2018, /MAR/2018, /APR/2018, /FEB/2019, /AUG/2019
     Route: 065
  11. EVEROLIMUS [Suspect]
     Active Substance: EVEROLIMUS
     Dosage: UNK, (REDUCED DOSE)
     Dates: start: 201803
  12. EVEROLIMUS [Suspect]
     Active Substance: EVEROLIMUS
     Dosage: UNK
     Dates: start: 201908
  13. EVEROLIMUS [Suspect]
     Active Substance: EVEROLIMUS
     Dosage: UNK, (INCREASED DOSE)
     Dates: start: 201902
  14. EVEROLIMUS [Suspect]
     Active Substance: EVEROLIMUS
     Dosage: UNK, (REDUCED DOSE)
     Route: 065
     Dates: start: 201801
  15. EVEROLIMUS [Suspect]
     Active Substance: EVEROLIMUS
     Dosage: UNK, (REDUCED DOSE)
     Dates: start: 201804
  16. RITUXIMAB [Suspect]
     Active Substance: RITUXIMAB
     Indication: Prophylaxis against transplant rejection
     Dosage: UNK, /OCT/2019, /AUG/2020, /MAR/2021
     Route: 065
  17. RITUXIMAB [Suspect]
     Active Substance: RITUXIMAB
     Dosage: UNK
     Route: 065
     Dates: start: 201910
  18. RITUXIMAB [Suspect]
     Active Substance: RITUXIMAB
     Dosage: UNK
     Dates: start: 202103
  19. RITUXIMAB [Suspect]
     Active Substance: RITUXIMAB
     Dosage: UNK
     Dates: start: 202008
  20. BASILIXIMAB [Suspect]
     Active Substance: BASILIXIMAB
     Indication: Prophylaxis against transplant rejection
     Dosage: UNK
     Route: 065
     Dates: start: 2017
  21. CYTOTEC [Suspect]
     Active Substance: MISOPROSTOL
     Indication: Product used for unknown indication
     Dosage: UNK
     Route: 042
     Dates: start: 201902

REACTIONS (4)
  - Neutropenia [Unknown]
  - Epstein-Barr virus infection [Unknown]
  - BK virus infection [Unknown]
  - Product use issue [Unknown]
